FAERS Safety Report 5726686-7 (Version None)
Quarter: 2008Q2

REPORT INFORMATION
  Report Type: 
  Country: None (occurrence: None)
  Receive Date: 20080502
  Receipt Date: 20080421
  Transmission Date: 20081010
  Serious: Yes (Hospitalization)
  Sender: FDA-Public Use
  Company Number: IN-NOVOPROD-274783

PATIENT

DRUGS (2)
  1. HUMAN MIXTARD 30 [Suspect]
     Indication: DRUG USE FOR UNKNOWN INDICATION
  2. HUMAN MIXTARD 30 [Suspect]

REACTIONS (1)
  - MALAISE [None]
